FAERS Safety Report 17285474 (Version 9)
Quarter: 2022Q2

REPORT INFORMATION
  Report Type: Report from Study
  Country: US (occurrence: US)
  Receive Date: 20200117
  Receipt Date: 20220411
  Transmission Date: 20220720
  Serious: Yes (Hospitalization, Other)
  Sender: FDA-Public Use
  Company Number: US-EXELIXIS-XL18420026547

PATIENT
  Age: 76 Year
  Sex: Female
  Weight: 60.658 kg

DRUGS (36)
  1. CABOZANTINIB [Suspect]
     Active Substance: CABOZANTINIB
     Indication: Renal cell carcinoma
     Dosage: 40 MG, QD
     Route: 048
     Dates: start: 20191115, end: 20200103
  2. CABOZANTINIB [Suspect]
     Active Substance: CABOZANTINIB
     Dosage: 20 MG, QD
     Route: 048
     Dates: start: 20200105, end: 20200109
  3. IPILIMUMAB [Suspect]
     Active Substance: IPILIMUMAB
     Indication: Renal cell carcinoma
     Dosage: 1 MG/KG, Q3WEEKS, 4 DOSES
     Route: 042
     Dates: start: 20191115, end: 20191227
  4. NIVOLUMAB [Suspect]
     Active Substance: NIVOLUMAB
     Indication: Renal cell carcinoma
     Dosage: 3 MG/KG, Q3WEEKS, 4 DOSES
     Route: 042
     Dates: start: 20191115, end: 20191227
  5. KETOPROFEN [Concomitant]
     Active Substance: KETOPROFEN
     Indication: Back pain
  6. ^Hydrasurge Electrolytes^ [Concomitant]
  7. ^Nutrim^ [Concomitant]
  8. BENEFIBER [Concomitant]
     Active Substance: STARCH, WHEAT
     Indication: Supplementation therapy
  9. FLONASE [Concomitant]
     Active Substance: FLUTICASONE PROPIONATE
     Indication: Nasal congestion
  10. MACROBID [Concomitant]
     Active Substance: NITROFURANTOIN\NITROFURANTOIN MONOHYDRATE
     Indication: Urinary tract infection
  11. PHENAZOPYRIDINE [Concomitant]
     Active Substance: PHENAZOPYRIDINE
     Indication: Urinary tract infection
  12. LISINOPRIL [Concomitant]
     Active Substance: LISINOPRIL
     Indication: Hypertension
  13. LABETALOL [Concomitant]
     Active Substance: LABETALOL\LABETALOL HYDROCHLORIDE
     Indication: Hypertension
  14. LEVOFLOXACIN [Concomitant]
     Active Substance: LEVOFLOXACIN
     Indication: Urinary tract infection
  15. AMLODIPINE [Concomitant]
     Active Substance: AMLODIPINE BESYLATE
     Indication: Hypertension
  16. ASPIRIN [Concomitant]
     Active Substance: ASPIRIN
     Indication: Prophylaxis
  17. CHOLECALCIFEROL [Concomitant]
     Active Substance: CHOLECALCIFEROL
     Indication: Supplementation therapy
  18. ESTRADIOL [Concomitant]
     Active Substance: ESTRADIOL
     Indication: Supplementation therapy
  19. MELOXICAM [Concomitant]
     Active Substance: MELOXICAM
     Indication: Arthritis
  20. OMEPRAZOLE [Concomitant]
     Active Substance: OMEPRAZOLE
     Indication: Gastrooesophageal reflux disease
  21. RESTORIL [Concomitant]
     Active Substance: TEMAZEPAM
     Indication: Insomnia
  22. LEVOTHYROXINE [Concomitant]
     Active Substance: LEVOTHYROXINE
     Indication: Hypothyroidism
  23. GABAPENTIN [Concomitant]
     Active Substance: GABAPENTIN
     Indication: Back pain
  24. PROBIOTICS NOS [Concomitant]
     Active Substance: PROBIOTICS NOS
     Indication: Supplementation therapy
  25. LUMIFY [Concomitant]
     Active Substance: BRIMONIDINE TARTRATE
     Indication: Ocular hyperaemia
  26. LUMIFY [Concomitant]
     Active Substance: BRIMONIDINE TARTRATE
     Indication: Dry eye
  27. FISH OIL [Concomitant]
     Active Substance: FISH OIL
     Indication: Supplementation therapy
  28. LIOTHYRONINE [Concomitant]
     Active Substance: LIOTHYRONINE
     Indication: Hypothyroidism
  29. PROTEIN POWDER [Concomitant]
  30. Magic Swizzle [Concomitant]
  31. TRIAMCINOLONE [Concomitant]
     Active Substance: TRIAMCINOLONE
  32. VITAMIN B12 [Concomitant]
     Active Substance: CYANOCOBALAMIN
  33. ALEVE [Concomitant]
     Active Substance: NAPROXEN SODIUM
  34. BENADRYL [Concomitant]
     Active Substance: DIPHENHYDRAMINE HYDROCHLORIDE
  35. TRAMADOL [Concomitant]
     Active Substance: TRAMADOL
  36. PANTOPRAZOLE [Concomitant]
     Active Substance: PANTOPRAZOLE

REACTIONS (7)
  - Colitis [Recovered/Resolved with Sequelae]
  - Large intestine perforation [Recovered/Resolved with Sequelae]
  - Alanine aminotransferase increased [Recovered/Resolved]
  - Nausea [Recovered/Resolved]
  - Vomiting [Recovered/Resolved]
  - Diarrhoea [Recovered/Resolved]
  - Hyperthyroidism [Recovered/Resolved]

NARRATIVE: CASE EVENT DATE: 20200104
